FAERS Safety Report 5357952-5 (Version None)
Quarter: 2007Q2

REPORT INFORMATION
  Report Type: 
  Country: None (occurrence: None)
  Receive Date: 20070612
  Receipt Date: 20070604
  Transmission Date: 20071010
  Serious: Yes (Hospitalization, Other)
  Sender: FDA-Public Use
  Company Number: 163-20785-06080883

PATIENT
  Age: 82 Year
  Sex: Female

DRUGS (6)
  1. THALOMID [Suspect]
     Indication: MULTIPLE MYELOMA
     Dosage: 50-200 MG, ORAL
     Route: 048
     Dates: start: 20030228
  2. CALCITRIOL [Concomitant]
  3. LASIX [Concomitant]
  4. POTASSIUM CHLORIDE [Concomitant]
  5. COUMADIN [Concomitant]
  6. MAGNESIUM OXIDE                         (MAGNESIUM OXIDE) [Concomitant]

REACTIONS (1)
  - LUNG NEOPLASM MALIGNANT [None]
